FAERS Safety Report 8065309-1 (Version None)
Quarter: 2012Q1

REPORT INFORMATION
  Report Type: 
  Country: None (occurrence: None)
  Receive Date: 20120124
  Receipt Date: 20120116
  Transmission Date: 20120608
  Serious: Yes (Other)
  Sender: FDA-Public Use
  Company Number: US-BAYER-2012-005075

PATIENT
  Age: 51 Year
  Sex: Female

DRUGS (2)
  1. YAZ [Suspect]
     Dosage: UNK
     Dates: start: 20061201, end: 20091001
  2. YASMIN [Suspect]
     Dosage: UNK
     Dates: start: 20061201, end: 20091001

REACTIONS (4)
  - CEREBROVASCULAR ACCIDENT [None]
  - PAIN [None]
  - INJURY [None]
  - EMOTIONAL DISTRESS [None]
